FAERS Safety Report 8907897 (Version 1)
Quarter: 2012Q4

REPORT INFORMATION
  Report Type: 
  Country: US (occurrence: US)
  Receive Date: 20121114
  Receipt Date: 20121114
  Transmission Date: 20130627
  Serious: No
  Sender: FDA-Public Use
  Company Number: US-009507513-1211USA000493

PATIENT
  Age: 40 Year
  Sex: Female

DRUGS (1)
  1. DULERA [Suspect]
     Indication: ASTHMA
     Dosage: UNK
     Dates: end: 20121031

REACTIONS (2)
  - Feeling jittery [Unknown]
  - Tachycardia [Unknown]
